FAERS Safety Report 7553800-3 (Version None)
Quarter: 2011Q2

REPORT INFORMATION
  Report Type: 
  Country: None (occurrence: None)
  Receive Date: 20110614
  Receipt Date: 20110614
  Transmission Date: 20111010
  Serious: Yes (Disabling)
  Sender: FDA-Public Use
  Company Number: None

PATIENT
  Age: 62 Year
  Sex: Female
  Weight: 113.3993 kg

DRUGS (1)
  1. EVISTA [Suspect]
     Indication: OSTEOPENIA
     Dates: start: 20030101, end: 20030115

REACTIONS (4)
  - MEDICAL DEVICE PAIN [None]
  - TOOTH EXTRACTION [None]
  - OSTEONECROSIS OF JAW [None]
  - TOOTH DISORDER [None]
